FAERS Safety Report 10269184 (Version 1)
Quarter: 2014Q2

REPORT INFORMATION
  Report Type: Spontaneous
  Country: US (occurrence: US)
  Receive Date: 20140630
  Receipt Date: 20140630
  Transmission Date: 20141212
  Serious: No
  Sender: FDA-Public Use
  Company Number: US-SA-2014SA048608

PATIENT
  Age: 71 Year
  Sex: Female

DRUGS (2)
  1. HECTOROL [Suspect]
     Indication: RENAL DISORDER
     Route: 065
     Dates: start: 2014
  2. HECTOROL [Suspect]
     Indication: VITAMIN D ABNORMAL
     Route: 065
     Dates: start: 2014

REACTIONS (3)
  - Arthralgia [Not Recovered/Not Resolved]
  - Bone pain [Not Recovered/Not Resolved]
  - Pain [Not Recovered/Not Resolved]
